FAERS Safety Report 5270098-X (Version None)
Quarter: 2007Q1

REPORT INFORMATION
  Report Type: 
  Country: None (occurrence: None)
  Receive Date: 20070320
  Receipt Date: 20070309
  Transmission Date: 20070707
  Serious: Yes (Hospitalization)
  Sender: FDA-Public Use
  Company Number: US-KINGPHARMUSA00001-K200700274

PATIENT

DRUGS (4)
  1. ALTACE [Suspect]
     Indication: HYPERTENSION
     Dosage: 5 MG, QD
     Route: 048
     Dates: start: 20061210
  2. ALTACE [Suspect]
     Dosage: 5 MG, QD
     Route: 048
     Dates: end: 20070221
  3. HYDROCHLOROTHIAZIDE [Suspect]
     Dosage: 5 MG, QD
     Route: 048
     Dates: start: 20061210
  4. HYDROCHLOROTHIAZIDE [Suspect]
     Dosage: 5 MG, QD
     Route: 048
     Dates: end: 20070221

REACTIONS (6)
  - ABDOMINAL PAIN UPPER [None]
  - CIRCULATORY COLLAPSE [None]
  - DIARRHOEA [None]
  - GASTROINTESTINAL PAIN [None]
  - INTESTINAL RESECTION [None]
  - VOMITING [None]
